FAERS Safety Report 6714970-X (Version None)
Quarter: 2010Q2

REPORT INFORMATION
  Report Type: 
  Country: None (occurrence: None)
  Receive Date: 20100507
  Receipt Date: 20100427
  Transmission Date: 20101027
  Serious: Yes (Other)
  Sender: FDA-Public Use
  Company Number: US-JNJFOC-20100501062

PATIENT
  Age: 15 Year
  Sex: Female

DRUGS (2)
  1. CLADRIBINE [Suspect]
     Indication: ACUTE MYELOID LEUKAEMIA
     Dosage: GIVEN INTRAVENOUSLY OVER 3 HOURS
     Route: 042
  2. TOPOTECAN [Suspect]
     Indication: ACUTE MYELOID LEUKAEMIA
     Dosage: INTRAVENOUSLY OVER 30 MINUTES, STARTING 8 HOURS AFTER INITIATION OF CLADRIBINE
     Route: 042

REACTIONS (9)
  - ACUTE MYELOID LEUKAEMIA [None]
  - DRUG EFFECT DECREASED [None]
  - DRUG TOXICITY [None]
  - FEBRILE NEUTROPENIA [None]
  - INCORRECT DOSE ADMINISTERED [None]
  - MALIGNANT NEOPLASM PROGRESSION [None]
  - PLEURAL EFFUSION [None]
  - RENAL FAILURE [None]
  - RESPIRATORY FAILURE [None]
